FAERS Safety Report 13337122 (Version 1)
Quarter: 2017Q1

REPORT INFORMATION
  Report Type: Spontaneous
  Country: NO (occurrence: NO)
  Receive Date: 20170315
  Receipt Date: 20170315
  Transmission Date: 20170428
  Serious: Yes (Death, Hospitalization, Other)
  Sender: FDA-Public Use
  Company Number: NO-SUN PHARMACEUTICAL INDUSTRIES LTD-2016R1-110891

PATIENT
  Age: 65 Year
  Sex: Female

DRUGS (13)
  1. PREDNISONE. [Suspect]
     Active Substance: PREDNISONE
     Dosage: UNK
     Route: 037
  2. VINCRISTINE [Suspect]
     Active Substance: VINCRISTINE
     Indication: NON-HODGKIN^S LYMPHOMA
     Route: 042
  3. METHOTREXATE. [Suspect]
     Active Substance: METHOTREXATE
     Indication: NON-HODGKIN^S LYMPHOMA
     Dosage: UNK
     Route: 042
  4. CYTARABINE. [Suspect]
     Active Substance: CYTARABINE
     Indication: NON-HODGKIN^S LYMPHOMA
     Route: 042
  5. DAUNORUBICINE [Suspect]
     Active Substance: DAUNORUBICIN
     Indication: NON-HODGKIN^S LYMPHOMA
     Route: 042
  6. PREDNISONE. [Suspect]
     Active Substance: PREDNISONE
     Indication: NON-HODGKIN^S LYMPHOMA
     Dosage: UNK
     Route: 048
  7. L-ASPARAGINASE [Suspect]
     Active Substance: ASPARAGINASE
     Indication: NON-HODGKIN^S LYMPHOMA
     Route: 042
  8. 6-MERCAPTOPURINE [Suspect]
     Active Substance: MERCAPTOPURINE
     Indication: NON-HODGKIN^S LYMPHOMA
     Route: 042
  9. 6-THIOGUANINE [Suspect]
     Active Substance: THIOGUANINE
     Indication: NON-HODGKIN^S LYMPHOMA
     Route: 042
  10. DOXORUBICIN [Suspect]
     Active Substance: DOXORUBICIN
     Indication: NON-HODGKIN^S LYMPHOMA
     Dosage: UNK
     Route: 042
  11. METHOTREXATE. [Suspect]
     Active Substance: METHOTREXATE
     Dosage: UNK
     Route: 037
  12. CYCLOPHOSPHAMIDE. [Suspect]
     Active Substance: CYCLOPHOSPHAMIDE
     Indication: NON-HODGKIN^S LYMPHOMA
     Route: 042
  13. CYTARABINE. [Suspect]
     Active Substance: CYTARABINE
     Dosage: UNK
     Route: 039

REACTIONS (3)
  - Intracranial venous sinus thrombosis [Fatal]
  - Toxicity to various agents [Fatal]
  - Haematotoxicity [Unknown]
